FAERS Safety Report 14251224 (Version 1)
Quarter: 2017Q4

REPORT INFORMATION
  Report Type: Spontaneous
  Country: US (occurrence: US)
  Receive Date: 20171205
  Receipt Date: 20171205
  Transmission Date: 20180321
  Serious: No
  Sender: FDA-Public Use
  Company Number: US-TARO-2017TAR00752

PATIENT
  Age: 89 Year
  Sex: Female
  Weight: 61.22 kg

DRUGS (4)
  1. FLUOCINOLONE ACETONIDE TOPICAL SCALP OIL 0.01% [Suspect]
     Active Substance: FLUOCINOLONE ACETONIDE
     Indication: DERMATITIS
     Dosage: UNK, 1X/DAY
     Route: 061
     Dates: start: 2017, end: 20170901
  2. FLUOCINOLONE ACETONIDE TOPICAL SCALP OIL 0.01% [Suspect]
     Active Substance: FLUOCINOLONE ACETONIDE
     Dosage: UNK, 1X/DAY
     Route: 061
     Dates: start: 20170904
  3. VO HAIR CONDITIONER 5 [Concomitant]
     Dosage: USED MOSTLY EVERYDAY
  4. LEVOTHYROXINE. [Concomitant]
     Active Substance: LEVOTHYROXINE
     Dosage: 25 ?G, 1X/DAY

REACTIONS (11)
  - Erythema [Unknown]
  - Eye irritation [Not Recovered/Not Resolved]
  - Product quality issue [Unknown]
  - Skin tightness [Not Recovered/Not Resolved]
  - Eye disorder [Not Recovered/Not Resolved]
  - Dermatitis [Not Recovered/Not Resolved]
  - Drug dose omission [Recovered/Resolved]
  - Accidental exposure to product [Not Recovered/Not Resolved]
  - Drug ineffective for unapproved indication [Not Recovered/Not Resolved]
  - Skin exfoliation [Not Recovered/Not Resolved]
  - Dry skin [Not Recovered/Not Resolved]

NARRATIVE: CASE EVENT DATE: 2017
